FAERS Safety Report 10746802 (Version 1)
Quarter: 2015Q1

REPORT INFORMATION
  Report Type: Spontaneous
  Country: IT (occurrence: IT)
  Receive Date: 20150129
  Receipt Date: 20150129
  Transmission Date: 20150721
  Serious: Yes (Hospitalization)
  Sender: FDA-Public Use
  Company Number: PHHY2015IT009512

PATIENT
  Age: 54 Year
  Sex: Female

DRUGS (3)
  1. EUTIROX [Concomitant]
     Active Substance: LEVOTHYROXINE SODIUM
     Indication: PRODUCT USED FOR UNKNOWN INDICATION
     Route: 065
  2. QUETIAPINE [Suspect]
     Active Substance: QUETIAPINE
     Indication: DRUG ABUSE
     Dosage: 10 DF, ONCE/SINGLE
     Route: 048
     Dates: start: 20150115, end: 20150115
  3. ATARAX [Suspect]
     Active Substance: HYDROXYZINE\HYDROXYZINE HYDROCHLORIDE
     Indication: DRUG ABUSE
     Dosage: 18 DF, ONCE/SINGLE
     Route: 048
     Dates: start: 20150115, end: 20150115

REACTIONS (6)
  - Bundle branch block left [Recovering/Resolving]
  - Sinus bradycardia [Recovering/Resolving]
  - Drug abuse [Recovering/Resolving]
  - Bradykinesia [Recovering/Resolving]
  - Electrocardiogram QT prolonged [Recovering/Resolving]
  - Bradyphrenia [Recovering/Resolving]

NARRATIVE: CASE EVENT DATE: 20150115
